FAERS Safety Report 16418585 (Version 2)
Quarter: 2019Q3

REPORT INFORMATION
  Report Type: Spontaneous
  Country: US (occurrence: US)
  Receive Date: 20190612
  Receipt Date: 20190802
  Transmission Date: 20191004
  Serious: Yes (Other)
  Sender: FDA-Public Use
  Company Number: US-SUN PHARMACEUTICAL INDUSTRIES LTD-2019R1-198978

PATIENT
  Sex: Female

DRUGS (1)
  1. ABSORICA [Suspect]
     Active Substance: ISOTRETINOIN
     Indication: PRODUCT USED FOR UNKNOWN INDICATION
     Dosage: UNK
     Route: 065
     Dates: start: 20190111, end: 20190520

REACTIONS (15)
  - Drug ineffective [Unknown]
  - Skin erosion [Unknown]
  - Alopecia [Unknown]
  - Burning sensation [Unknown]
  - Acne [Unknown]
  - Pain [Unknown]
  - Swelling face [Unknown]
  - Erythema [Unknown]
  - Diplopia [Unknown]
  - Chapped lips [Unknown]
  - Loss of personal independence in daily activities [Unknown]
  - Eye colour change [Unknown]
  - Dry skin [Unknown]
  - Abdominal pain [Unknown]
  - Skin discolouration [Unknown]

NARRATIVE: CASE EVENT DATE: 2019
